FAERS Safety Report 11697559 (Version 1)
Quarter: 2015Q4

REPORT INFORMATION
  Report Type: Spontaneous
  Country: US (occurrence: US)
  Receive Date: 20151104
  Receipt Date: 20151104
  Transmission Date: 20160304
  Serious: No
  Sender: FDA-Public Use
  Company Number: US-009507513-1510USA013402

PATIENT
  Age: 14 Year
  Sex: Female
  Weight: 65.76 kg

DRUGS (1)
  1. NEXPLANON [Suspect]
     Active Substance: ETONOGESTREL
     Indication: CONTRACEPTION
     Dosage: 3 YEARS
     Route: 059
     Dates: start: 20130705

REACTIONS (5)
  - Acne [Unknown]
  - Haemorrhage [Unknown]
  - Cystitis [Unknown]
  - Back pain [Unknown]
  - Implant site pain [Unknown]

NARRATIVE: CASE EVENT DATE: 20130705
